FAERS Safety Report 6703915-4 (Version None)
Quarter: 2010Q2

REPORT INFORMATION
  Report Type: 
  Country: None (occurrence: None)
  Receive Date: 20100430
  Receipt Date: 20100422
  Transmission Date: 20101027
  Serious: Yes (Hospitalization)
  Sender: FDA-Public Use
  Company Number: JP-ROCHE-699511

PATIENT
  Sex: Female

DRUGS (2)
  1. COPEGUS [Suspect]
     Route: 048
     Dates: start: 20090927, end: 20091004
  2. PEGASYS [Suspect]
     Dosage: NOTE: DOSE IS UNCERTAIN
     Route: 058

REACTIONS (2)
  - CEREBRAL ARTERIOSCLEROSIS [None]
  - THROMBOTIC CEREBRAL INFARCTION [None]
